FAERS Safety Report 6304088-2 (Version None)
Quarter: 2009Q3

REPORT INFORMATION
  Report Type: 
  Country: None (occurrence: None)
  Receive Date: 20090810
  Receipt Date: 20090810
  Transmission Date: 20100115
  Serious: Yes (Hospitalization)
  Sender: FDA-Public Use
  Company Number: None

PATIENT
  Sex: Female
  Weight: 97.7 kg

DRUGS (4)
  1. LISINOPRIL 20 MG LUPIN LTD, MUMBAI, INDIA [Suspect]
     Indication: DIABETES MELLITUS
     Dosage: 40 MG ONCE A DAY 047
     Dates: start: 20090305, end: 20090324
  2. LISINOPRIL 20 MG LUPIN LTD, MUMBAI, INDIA [Suspect]
     Indication: HYPERTENSION
     Dosage: 40 MG ONCE A DAY 047
     Dates: start: 20090305, end: 20090324
  3. LISINOPRIL 20 MG LUPIN LTD, MUMBAI, INDIA [Suspect]
     Indication: DIABETES MELLITUS
     Dosage: 40 MG ONCE A DAY 047
     Dates: start: 20090409, end: 20090418
  4. LISINOPRIL 20 MG LUPIN LTD, MUMBAI, INDIA [Suspect]
     Indication: HYPERTENSION
     Dosage: 40 MG ONCE A DAY 047
     Dates: start: 20090409, end: 20090418

REACTIONS (3)
  - CHEST PAIN [None]
  - PRODUCT QUALITY ISSUE [None]
  - VERTIGO [None]
